FAERS Safety Report 10260031 (Version 2)
Quarter: 2014Q2

REPORT INFORMATION
  Report Type: Spontaneous
  Country: US (occurrence: US)
  Receive Date: 20140625
  Receipt Date: 20140625
  Transmission Date: 20141212
  Serious: Yes (Other)
  Sender: FDA-Public Use
  Company Number: US-BAXTER-2014BAX030422

PATIENT
  Sex: Female

DRUGS (2)
  1. DIANEAL LOW CALCIUM [Suspect]
     Indication: PERITONEAL DIALYSIS
     Route: 033
     Dates: start: 20140407
  2. DIANEAL LOW CALCIUM [Suspect]
     Indication: PERITONEAL DIALYSIS
     Route: 033
     Dates: start: 20140407

REACTIONS (7)
  - Hypersensitivity [Recovering/Resolving]
  - Oedema [Recovered/Resolved]
  - Weight decreased [Not Recovered/Not Resolved]
  - Swelling [Recovering/Resolving]
  - Blood pressure increased [Recovered/Resolved]
  - Eczema [Recovering/Resolving]
  - Muscle spasms [Recovered/Resolved]
